FAERS Safety Report 20843185 (Version 1)
Quarter: 2022Q2

REPORT INFORMATION
  Report Type: Spontaneous
  Country: US (occurrence: None)
  Receive Date: 20220517
  Receipt Date: 20220517
  Transmission Date: 20220721
  Serious: Yes (Death)
  Sender: FDA-Public Use
  Company Number: None

PATIENT
  Age: 71 Year
  Sex: Male

DRUGS (1)
  1. PRIVIGEN [Suspect]
     Active Substance: HUMAN IMMUNOGLOBULIN G
     Indication: Drug therapy
     Dosage: OTHER STRENGTH : 10G/100ML;?
     Route: 042
     Dates: start: 202202

REACTIONS (1)
  - Death [None]

NARRATIVE: CASE EVENT DATE: 20220405
